FAERS Safety Report 10080364 (Version 3)
Quarter: 2014Q2

REPORT INFORMATION
  Report Type: Spontaneous
  Country: JP (occurrence: JP)
  Receive Date: 20140415
  Receipt Date: 20140521
  Transmission Date: 20141212
  Serious: No
  Sender: FDA-Public Use
  Company Number: PHHY2014JP035386

PATIENT
  Sex: Male

DRUGS (1)
  1. SLOW K [Suspect]
     Dosage: UNK UKN, UNK
     Route: 048

REACTIONS (1)
  - Diarrhoea [Unknown]
